FAERS Safety Report 15859310 (Version 1)
Quarter: 2019Q1

REPORT INFORMATION
  Report Type: Spontaneous
  Country: FR (occurrence: FR)
  Receive Date: 20190123
  Receipt Date: 20190123
  Transmission Date: 20190417
  Serious: Yes (Hospitalization)
  Sender: FDA-Public Use
  Company Number: FR-ALLERGAN-1902769US

PATIENT
  Age: 44 Year
  Sex: Female
  Weight: 78 kg

DRUGS (3)
  1. OESTROGEL [Suspect]
     Active Substance: ESTRADIOL
     Indication: HIRSUTISM
     Route: 062
  2. ESCITALOPRAM OXALATE - BP [Suspect]
     Active Substance: ESCITALOPRAM OXALATE
     Indication: DEPRESSION
     Dosage: 1 DF, QD
     Route: 048
  3. ANDROCUR [Suspect]
     Active Substance: CYPROTERONE ACETATE
     Indication: HIRSUTISM
     Route: 048
     Dates: end: 20181031

REACTIONS (2)
  - Epilepsy [Recovered/Resolved]
  - Meningioma [Not Recovered/Not Resolved]

NARRATIVE: CASE EVENT DATE: 201810
